FAERS Safety Report 14481615 (Version 5)
Quarter: 2018Q2

REPORT INFORMATION
  Report Type: Spontaneous
  Country: CA (occurrence: CA)
  Receive Date: 20180202
  Receipt Date: 20180627
  Transmission Date: 20180711
  Serious: Yes (Other)
  Sender: FDA-Public Use
  Company Number: CA-CELLTRION INC.-2017CA013130

PATIENT

DRUGS (12)
  1. INFLECTRA [Suspect]
     Active Substance: INFLIXIMAB-DYYB
     Dosage: 300 MG , CYCLIC; UNKNOWN
     Route: 065
     Dates: start: 20180108
  2. INFLECTRA [Suspect]
     Active Substance: INFLIXIMAB-DYYB
     Dosage: 5 MG/KG (EVERY 6 WEEKS);
     Route: 042
  3. INFLECTRA [Suspect]
     Active Substance: INFLIXIMAB-DYYB
     Indication: COLITIS ULCERATIVE
     Dosage: 300 MG, EVERY 0, 2, 6 WEEKS,THEN EVERY 8 WEEKS
     Route: 042
     Dates: start: 20170929
  4. SULFATE FERREUX [Concomitant]
     Dosage: 300 MG, DAILY
  5. PREDNISONE. [Concomitant]
     Active Substance: PREDNISONE
     Dosage: UNK
     Dates: start: 201708
  6. INFLECTRA [Suspect]
     Active Substance: INFLIXIMAB-DYYB
     Dosage: 5 MG/KG, CYCLIC;
     Route: 042
     Dates: start: 20180201, end: 20180201
  7. INFLECTRA [Suspect]
     Active Substance: INFLIXIMAB-DYYB
     Dosage: 10 MG/KG (500 MG), CYCLIC;
     Route: 042
     Dates: start: 20180430
  8. NASOCORT [Concomitant]
     Active Substance: BUDESONIDE
     Dosage: UNK
  9. INFLECTRA [Suspect]
     Active Substance: INFLIXIMAB-DYYB
     Dosage: UNK
     Route: 065
     Dates: start: 20171113, end: 20180201
  10. PREDNISONE. [Concomitant]
     Active Substance: PREDNISONE
     Dosage: TAPPER DOSE
  11. INDERAL [Concomitant]
     Active Substance: PROPRANOLOL HYDROCHLORIDE
     Dosage: 30 MG, BID
  12. OXAZEPAM. [Concomitant]
     Active Substance: OXAZEPAM
     Dosage: 15 MG, AS NEEDED AT BEDTIME

REACTIONS (11)
  - Condition aggravated [Unknown]
  - Incorrect dose administered [Unknown]
  - Therapeutic response shortened [Unknown]
  - Nasopharyngitis [Unknown]
  - Rectal haemorrhage [Recovered/Resolved]
  - Migraine [Unknown]
  - Drug ineffective [Unknown]
  - Stress [Unknown]
  - Inappropriate schedule of drug administration [Unknown]
  - Product use issue [Unknown]
  - Abnormal faeces [Unknown]

NARRATIVE: CASE EVENT DATE: 201711
